FAERS Safety Report 9149751 (Version 1)
Quarter: 2013Q1

REPORT INFORMATION
  Report Type: Spontaneous
  Country: US (occurrence: None)
  Receive Date: 20130201
  Receipt Date: 20130201
  Transmission Date: 20140127
  Serious: Yes (Other)
  Sender: FDA-Public Use
  Company Number: 1579450

PATIENT
  Age: 55 Year
  Sex: Female

DRUGS (5)
  1. CARBOPLATIN [Suspect]
     Indication: OVARIAN CANCER RECURRENT
  2. CISPLATIN [Suspect]
     Indication: OVARIAN CANCER RECURRENT
     Route: 033
  3. PEGYLATED LIPOSOMAL DOXORUBICIN HYDROCHLORIDE [Suspect]
     Indication: OVARIAN CANCER RECURRENT
  4. BEVACIZUMAB [Suspect]
     Indication: OVARIAN CANCER RECURRENT
  5. PACLITAXEL [Concomitant]

REACTIONS (2)
  - Renal failure chronic [None]
  - Hypertension [None]
